FAERS Safety Report 24779449 (Version 1)
Quarter: 2024Q4

REPORT INFORMATION
  Report Type: Report from Study
  Country: NL (occurrence: NL)
  Receive Date: 20241226
  Receipt Date: 20241226
  Transmission Date: 20250114
  Serious: Yes (Other)
  Sender: MYLAN
  Company Number: None

PATIENT
  Age: 83 Year
  Sex: Male
  Weight: 93 kg

DRUGS (10)
  1. CARBIDOPA\LEVODOPA [Suspect]
     Active Substance: CARBIDOPA\LEVODOPA
     Indication: Parkinson^s disease
     Dosage: TABLET, 100/25 MG (MILLIGRAM),
     Route: 048
     Dates: start: 20160617
  2. CARBIDOPA\LEVODOPA [Suspect]
     Active Substance: CARBIDOPA\LEVODOPA
     Indication: Parkinson^s disease
     Dosage: MODIFIED-RELEASE TABLET, 200/50 MG (MILLIGRAM),
     Route: 048
     Dates: start: 20160617
  3. BENSERAZIDE\LEVODOPA [Suspect]
     Active Substance: BENSERAZIDE\LEVODOPA
     Indication: Parkinson^s disease
     Dosage: CAPSULE, 100/25 MG (MILLIGRAM),
     Route: 048
     Dates: start: 20160617
  4. ATORVASTATIN [Concomitant]
     Active Substance: ATORVASTATIN
     Dosage: 40 MILLIGRAM, TABLET
     Route: 048
  5. ESOMEPRAZOLE [Concomitant]
     Active Substance: ESOMEPRAZOLE
     Dosage: GASTRO-RESISTANT CAPSULE, 40 MG (MILLIGRAM)
     Route: 048
  6. FUROSEMIDE [Concomitant]
     Active Substance: FUROSEMIDE
     Dosage: 40 MILLIGRAM, TABLET
     Route: 048
  7. CALCIUMCARBONAAT [Concomitant]
     Dosage: 1.25 GRAM, CHEWABLE TABLET
     Route: 048
  8. CHOLECALCIFEROL [Concomitant]
     Active Substance: CHOLECALCIFEROL
     Dosage: TABLET, 800 UNITS
     Route: 048
  9. METFORMIN HYDROCHLORIDE [Concomitant]
     Active Substance: METFORMIN HYDROCHLORIDE
     Dosage: 500 MILLIGRAM TABLET
     Route: 048
  10. PHENPROCOUMON [Concomitant]
     Active Substance: PHENPROCOUMON
     Dosage: UNK
     Route: 065

REACTIONS (2)
  - Polyneuropathy [Unknown]
  - Vitamin B6 deficiency [Recovered/Resolved]
